FAERS Safety Report 8356937-4 (Version None)
Quarter: 2012Q2

REPORT INFORMATION
  Report Type: 
  Country: None (occurrence: None)
  Receive Date: 20120514
  Receipt Date: 20100205
  Transmission Date: 20120825
  Serious: No
  Sender: FDA-Public Use
  Company Number: US-TEVA-2009029693

PATIENT
  Sex: Female
  Weight: 81.72 kg

DRUGS (3)
  1. TREANDA [Suspect]
     Indication: B-CELL SMALL LYMPHOCYTIC LYMPHOMA
     Route: 042
     Dates: start: 20091130, end: 20091201
  2. SALINE [Concomitant]
     Dates: start: 20091130
  3. TREANDA [Suspect]
     Route: 042
     Dates: start: 20091228

REACTIONS (6)
  - INFUSION SITE EXTRAVASATION [None]
  - RASH [None]
  - PRURITUS [None]
  - CONTUSION [None]
  - VEIN DISORDER [None]
  - ARTHRALGIA [None]
